FAERS Safety Report 5216795-3 (Version None)
Quarter: 2007Q1

REPORT INFORMATION
  Report Type: 
  Country: None (occurrence: None)
  Receive Date: 20070118
  Receipt Date: 20070109
  Transmission Date: 20070707
  Serious: Yes (Hospitalization)
  Sender: FDA-Public Use
  Company Number: 114-20785-07010717

PATIENT
  Age: 57 Year
  Sex: Female

DRUGS (2)
  1. THALIDOMIDE [Suspect]
     Indication: MULTIPLE MYELOMA
  2. DEXAMETHASONE TAB [Suspect]
     Indication: DRUG USE FOR UNKNOWN INDICATION

REACTIONS (17)
  - BLISTER [None]
  - BLOOD ALBUMIN DECREASED [None]
  - BLOOD CREATININE INCREASED [None]
  - C-REACTIVE PROTEIN INCREASED [None]
  - CULTURE URINE POSITIVE [None]
  - DIARRHOEA [None]
  - ENTEROBACTER INFECTION [None]
  - GASTROENTERITIS SALMONELLA [None]
  - HAEMOGLOBIN DECREASED [None]
  - LEG AMPUTATION [None]
  - NECROTISING FASCIITIS [None]
  - OEDEMA PERIPHERAL [None]
  - PLATELET COUNT DECREASED [None]
  - PROTHROMBIN TIME SHORTENED [None]
  - SALMONELLA SEPSIS [None]
  - SPINAL CORD COMPRESSION [None]
  - SPINAL DISORDER [None]
